FAERS Safety Report 12892787 (Version 1)
Quarter: 2016Q4

REPORT INFORMATION
  Report Type: Report from Study
  Country: US (occurrence: US)
  Receive Date: 20161028
  Receipt Date: 20161028
  Transmission Date: 20170207
  Serious: Yes (Other)
  Sender: FDA-Public Use
  Company Number: US-MALLINCKRODT-T201605155

PATIENT
  Sex: Female

DRUGS (4)
  1. REPOSITORY CORTICOTROPIN INJECTION [Suspect]
     Active Substance: CORTICOTROPIN
     Indication: SARCOIDOSIS
     Dosage: 40U/.5ML, EVERY 3 DAYS
     Route: 058
     Dates: start: 20160301
  2. VALIUM [Suspect]
     Active Substance: DIAZEPAM
     Indication: EMOTIONAL DISORDER
  3. ZANTAC [Suspect]
     Active Substance: RANITIDINE HYDROCHLORIDE
  4. TRANSDERM SCOP [Concomitant]
     Active Substance: SCOPOLAMINE

REACTIONS (4)
  - Decubitus ulcer [Not Recovered/Not Resolved]
  - Memory impairment [Recovering/Resolving]
  - Emotional disorder [Not Recovered/Not Resolved]
  - Cataract [Not Recovered/Not Resolved]
